FAERS Safety Report 15017085 (Version 7)
Quarter: 2019Q3

REPORT INFORMATION
  Report Type: Spontaneous
  Country: US (occurrence: US)
  Receive Date: 20180615
  Receipt Date: 20190827
  Transmission Date: 20191004
  Serious: Yes (Life-Threatening, Hospitalization, Other)
  Sender: FDA-Public Use
  Company Number: US-CONCORDIA PHARMACEUTICALS INC.-GSH201806-002049

PATIENT
  Age: 79 Year
  Sex: Female

DRUGS (4)
  1. HYDROXYCHLOROQUINE [Suspect]
     Active Substance: HYDROXYCHLOROQUINE
     Indication: RHEUMATOID ARTHRITIS
     Route: 065
     Dates: start: 2007
  2. METHOTREXATE. [Suspect]
     Active Substance: METHOTREXATE
     Indication: RHEUMATOID ARTHRITIS
     Route: 048
     Dates: start: 2007
  3. PREDNISOLONE. [Suspect]
     Active Substance: PREDNISOLONE
     Indication: RHEUMATOID ARTHRITIS
     Dates: start: 2007
  4. PREDNISONE. [Suspect]
     Active Substance: PREDNISONE
     Indication: RHEUMATOID ARTHRITIS
     Route: 065

REACTIONS (16)
  - Tachycardia [Unknown]
  - Dyspnoea [Unknown]
  - Bronchopleural fistula [Recovered/Resolved]
  - Pneumothorax [Recovered/Resolved]
  - Tachypnoea [Unknown]
  - Respiratory failure [Unknown]
  - Palpitations [Unknown]
  - Hypoxia [Unknown]
  - Toxicity to various agents [Unknown]
  - Chest discomfort [Unknown]
  - Pneumothorax [Unknown]
  - Pulmonary fibrosis [Unknown]
  - Pleurisy [Unknown]
  - Subcutaneous emphysema [Unknown]
  - Pulmonary hypertension [Unknown]
  - Breath sounds abnormal [Unknown]

NARRATIVE: CASE EVENT DATE: 201706
